FAERS Safety Report 25818806 (Version 1)
Quarter: 2025Q3

REPORT INFORMATION
  Report Type: Spontaneous
  Country: US (occurrence: US)
  Receive Date: 20250918
  Receipt Date: 20250918
  Transmission Date: 20251020
  Serious: No
  Sender: TEVA
  Company Number: US-TEVA-VS-3369059

PATIENT
  Age: 78 Year
  Sex: Female

DRUGS (1)
  1. DIAZEPAM [Suspect]
     Active Substance: DIAZEPAM
     Indication: Product used for unknown indication
     Route: 048

REACTIONS (7)
  - Tongue discomfort [Unknown]
  - Feeling abnormal [Unknown]
  - Insomnia [Unknown]
  - Product quality issue [Unknown]
  - Hypersensitivity [Unknown]
  - Fear [Unknown]
  - Malaise [Not Recovered/Not Resolved]
